FAERS Safety Report 7909591-7 (Version None)
Quarter: 2011Q4

REPORT INFORMATION
  Report Type: 
  Country: None (occurrence: None)
  Receive Date: 20111111
  Receipt Date: 20111108
  Transmission Date: 20120403
  Serious: Yes (Other)
  Sender: FDA-Public Use
  Company Number: US-BAYER-2011-108811

PATIENT
  Age: 75 Year
  Sex: Male

DRUGS (10)
  1. TOPROL-XL [Concomitant]
  2. FISH OIL [Concomitant]
  3. GABAPENTIN [Concomitant]
  4. ASPIRIN [Suspect]
     Indication: ISCHAEMIC HEART DISEASE PROPHYLAXIS
     Dosage: 2 DF, QD
     Route: 048
  5. TAMSULOSIN HCL [Concomitant]
  6. MULTI-VITAMIN [Concomitant]
  7. SAW PALMETTO [Concomitant]
  8. LISINOPRIL [Concomitant]
  9. ASCORBIC ACID [Concomitant]
  10. LIPITOR [Concomitant]
     Dosage: UNK

REACTIONS (1)
  - HAEMOPTYSIS [None]
